FAERS Safety Report 9809339 (Version 1)
Quarter: 2014Q1

REPORT INFORMATION
  Report Type: Spontaneous
  Country: GB (occurrence: GB)
  Receive Date: 20140110
  Receipt Date: 20140110
  Transmission Date: 20141002
  Serious: Yes (Hospitalization)
  Sender: FDA-Public Use
  Company Number: GB-ABBVIE-14P-167-1188572-00

PATIENT
  Age: 60 Year
  Sex: Male

DRUGS (2)
  1. CLARITHROMYCIN [Suspect]
     Indication: SEPSIS
  2. CLOZARIL [Interacting]
     Indication: SCHIZOPHRENIA
     Dates: start: 20030124

REACTIONS (2)
  - Drug interaction [Unknown]
  - White blood cell count decreased [Unknown]
